FAERS Safety Report 7932260-4 (Version None)
Quarter: 2011Q4

REPORT INFORMATION
  Report Type: 
  Country: None (occurrence: None)
  Receive Date: 20111121
  Receipt Date: 20110511
  Transmission Date: 20120403
  Serious: Yes (Other)
  Sender: FDA-Public Use
  Company Number: US-AMGEN-USASP2011024948

PATIENT
  Sex: Female

DRUGS (2)
  1. VECTIBIX [Suspect]
     Indication: PRODUCT USED FOR UNKNOWN INDICATION
  2. CETUXIMAB [Concomitant]

REACTIONS (3)
  - ERYTHEMA [None]
  - INFUSION RELATED REACTION [None]
  - SWELLING FACE [None]
